FAERS Safety Report 5224780-0 (Version None)
Quarter: 2007Q1

REPORT INFORMATION
  Report Type: 
  Country: None (occurrence: None)
  Receive Date: 20070131
  Receipt Date: 20070119
  Transmission Date: 20070707
  Serious: Yes (Hospitalization)
  Sender: FDA-Public Use
  Company Number: US-JNJFOC-20070105455

PATIENT
  Sex: Male
  Weight: 61.24 kg

DRUGS (1)
  1. FENTANYL TRANSDERMAL SYSTEM [Suspect]
     Indication: PAIN

REACTIONS (2)
  - LUNG NEOPLASM [None]
  - LUNG NEOPLASM MALIGNANT [None]
